FAERS Safety Report 4358941-X (Version None)
Quarter: 2004Q2

REPORT INFORMATION
  Report Type: 
  Country: None (occurrence: None)
  Receive Date: 20040512
  Receipt Date: 20040428
  Transmission Date: 20050107
  Serious: Yes (Other)
  Sender: FDA-Public Use
  Company Number: US_0405102709

PATIENT
  Sex: Female

DRUGS (3)
  1. EVISTA [Suspect]
     Dates: start: 20030601
  2. ACTONEL [Concomitant]
  3. MIACALCIN [Concomitant]

REACTIONS (2)
  - SPINAL CORD COMPRESSION [None]
  - STERNAL FRACTURE [None]
